FAERS Safety Report 14160109 (Version 1)
Quarter: 2017Q4

REPORT INFORMATION
  Report Type: Spontaneous
  Country: US (occurrence: US)
  Receive Date: 20171103
  Receipt Date: 20171103
  Transmission Date: 20180321
  Serious: Yes (Other)
  Sender: FDA-Public Use
  Company Number: US-TEIKOKU PHARMA USA-TPU2017-00683

PATIENT
  Sex: Female
  Weight: 48.12 kg

DRUGS (4)
  1. LIDOCAINE PATCH [Suspect]
     Active Substance: LIDOCAINE
     Indication: BACK PAIN
     Dosage: APPLY 1-2 PATCHES ABOVE THE TAIL BONE AND LOWER BACK, LEAVE ON FOR 12 HOURS AND OFF FOR 12 HOURS?CUR
     Dates: start: 2003
  2. AMLODIPINE [Concomitant]
     Active Substance: AMLODIPINE BESYLATE
     Indication: HYPERTENSION
     Dates: start: 201506
  3. CORTISONE [Suspect]
     Active Substance: CORTISONE\HYDROCORTISONE
     Indication: BACK PAIN
     Dates: start: 201506
  4. LIALDA [Concomitant]
     Active Substance: MESALAMINE
     Indication: COLITIS ULCERATIVE
     Dates: start: 201312

REACTIONS (4)
  - Myocardial infarction [Unknown]
  - Glucose tolerance impaired [Unknown]
  - Colitis ulcerative [Unknown]
  - Pancreatitis [Unknown]

NARRATIVE: CASE EVENT DATE: 2010
